FAERS Safety Report 21342907 (Version 1)
Quarter: 2022Q3

REPORT INFORMATION
  Report Type: Report from Study
  Country: US (occurrence: US)
  Receive Date: 20220916
  Receipt Date: 20220916
  Transmission Date: 20221027
  Serious: No
  Sender: FDA-Public Use
  Company Number: US-NOVARTISTESTPH-NVSC2022US209209

PATIENT
  Sex: Male

DRUGS (1)
  1. KESIMPTA [Suspect]
     Active Substance: OFATUMUMAB
     Indication: Multiple sclerosis
     Dosage: 20MG/0.4ML, QMO (STARTING AT WEEK 4 AS DIRECTED)
     Route: 058

REACTIONS (5)
  - Chills [Unknown]
  - Pyrexia [Unknown]
  - Night sweats [Unknown]
  - Aphthous ulcer [Unknown]
  - Oral herpes [Unknown]
